FAERS Safety Report 11240264 (Version 3)
Quarter: 2015Q4

REPORT INFORMATION
  Report Type: Spontaneous
  Country: US (occurrence: US)
  Receive Date: 20150706
  Receipt Date: 20151218
  Transmission Date: 20160304
  Serious: Yes (Other)
  Sender: FDA-Public Use
  Company Number: US-SA-2015SA093685

PATIENT
  Age: 84 Year
  Sex: Male
  Weight: 87 kg

DRUGS (22)
  1. ASPIRIN. [Concomitant]
     Active Substance: ASPIRIN
  2. CALCIUM [Concomitant]
     Active Substance: CALCIUM
  3. CARBAMAZEPINE. [Concomitant]
     Active Substance: CARBAMAZEPINE
     Dosage: FREQUENCY: 1 AND 1/2 TWICE DAILY
  4. SIMVASTATIN. [Concomitant]
     Active Substance: SIMVASTATIN
     Dosage: FREQUENCY: 1/2 DAILY AT BED
  5. FAMOTIDINE. [Concomitant]
     Active Substance: FAMOTIDINE
     Dosage: FRQUENCY: 2 DAILY
  6. SOLOSTAR [Suspect]
     Active Substance: DEVICE
     Indication: DIABETES MELLITUS
     Dosage: TREATMENT START DATE: 5 YEARS OR MORE
  7. ZOLPIDEM [Concomitant]
     Active Substance: ZOLPIDEM\ZOLPIDEM TARTRATE
  8. METOPROLOL [Concomitant]
     Active Substance: METOPROLOL
     Dosage: FREQUENCY: 1/2 DAILY
  9. NOVOLOG [Concomitant]
     Active Substance: INSULIN ASPART
     Dosage: DOSE:10 UNIT(S)
  10. LATANOPROST. [Concomitant]
     Active Substance: LATANOPROST
     Dosage: 1 DROP EACH EYE
  11. GABAPENTIN. [Concomitant]
     Active Substance: GABAPENTIN
  12. COLCRYS [Concomitant]
     Active Substance: COLCHICINE
  13. LANTUS SOLOSTAR [Suspect]
     Active Substance: INSULIN GLARGINE
     Indication: DIABETES MELLITUS
     Dosage: TREATMENT START DATE: 5 YEARS OR MORE DOSE:24 UNIT(S)
     Route: 065
  14. LANTUS SOLOSTAR [Suspect]
     Active Substance: INSULIN GLARGINE
     Indication: DIABETES MELLITUS
     Dosage: TREATMENT START DATE: 5 YEARS OR MORE DOSE:24 UNIT(S)
     Route: 065
  15. SOLOSTAR [Suspect]
     Active Substance: DEVICE
     Indication: DIABETES MELLITUS
     Dosage: TREATMENT START DATE: 5 YEARS OR MORE
  16. FUROSEMIDE. [Concomitant]
     Active Substance: FUROSEMIDE
  17. NYSTATIN. [Concomitant]
     Active Substance: NYSTATIN
     Dosage: DOSE: 100,000 UNITS PER GRAM
  18. CLOPIDOGREL [Concomitant]
     Active Substance: CLOPIDOGREL BISULFATE
  19. GABAPENTIN. [Concomitant]
     Active Substance: GABAPENTIN
  20. TAMSULOSIN [Concomitant]
     Active Substance: TAMSULOSIN
  21. CLONAZEPAM. [Concomitant]
     Active Substance: CLONAZEPAM
  22. NITROSTAT [Concomitant]
     Active Substance: NITROGLYCERIN

REACTIONS (3)
  - Dyspnoea [Unknown]
  - Injury associated with device [Unknown]
  - Pulmonary fibrosis [Unknown]

NARRATIVE: CASE EVENT DATE: 201501
